FAERS Safety Report 23309405 (Version 1)
Quarter: 2023Q4

REPORT INFORMATION
  Report Type: Report from Study
  Country: US (occurrence: US)
  Receive Date: 20231218
  Receipt Date: 20231218
  Transmission Date: 20240109
  Serious: Yes (Hospitalization)
  Sender: FDA-Public Use
  Company Number: US-ALNYLAM PHARMACEUTICALS, INC.-ALN-2023-006658

PATIENT

DRUGS (1)
  1. GIVLAARI [Suspect]
     Active Substance: GIVOSIRAN SODIUM
     Indication: Product used for unknown indication
     Dosage: 209.55 (UNIT NOT REPORTED), (189 MILLIGRAM PER MILLILITRE), EVERY 28 DAYS
     Route: 058
     Dates: start: 20231025

REACTIONS (3)
  - Porphyria acute [Unknown]
  - Ill-defined disorder [Unknown]
  - Decreased appetite [Unknown]
